FAERS Safety Report 7860116-4 (Version None)
Quarter: 2011Q4

REPORT INFORMATION
  Report Type: 
  Country: None (occurrence: None)
  Receive Date: 20111027
  Receipt Date: 20111018
  Transmission Date: 20120403
  Serious: Yes (Other)
  Sender: FDA-Public Use
  Company Number: BR-ASTRAZENECA-2011SE59554

PATIENT
  Age: 66 Year
  Sex: Female

DRUGS (4)
  1. MANIPULATED SIMVASTATIN [Concomitant]
     Indication: HYPERCHOLESTEROLAEMIA
     Dosage: 3 TIMES/WEEK
     Route: 048
     Dates: start: 20100101
  2. ATACAND HCT [Suspect]
     Dosage: 16/12.5 MG
     Route: 048
  3. ATENOLOL [Concomitant]
  4. ATACAND HCT [Suspect]
     Indication: HYPERTENSION
     Dosage: 8/12.5 MG
     Route: 048
     Dates: start: 20110101, end: 20110901

REACTIONS (7)
  - BLOOD PRESSURE INCREASED [None]
  - VOMITING [None]
  - NAUSEA [None]
  - DRUG INEFFECTIVE [None]
  - LABYRINTHITIS [None]
  - DIZZINESS [None]
  - MALAISE [None]
